FAERS Safety Report 5340033-4 (Version None)
Quarter: 2007Q2

REPORT INFORMATION
  Report Type: 
  Country: None (occurrence: None)
  Receive Date: 20070405
  Receipt Date: 20061108
  Transmission Date: 20071010
  Serious: Yes (Hospitalization)
  Sender: FDA-Public Use
  Company Number: US200611001426

PATIENT
  Age: 45 Year
  Sex: Female

DRUGS (3)
  1. CYMBALTA [Suspect]
     Indication: POST-TRAUMATIC STRESS DISORDER
     Dosage: 60 MG
     Dates: start: 20061001
  2. XANAX /USA/ (ALPRAZOLAM) [Concomitant]
  3. HORMONES AND RELATED AGENTS [Concomitant]

REACTIONS (5)
  - ALCOHOL WITHDRAWAL SYNDROME [None]
  - BLOOD POTASSIUM DECREASED [None]
  - CONVULSION [None]
  - FALL [None]
  - MOUTH INJURY [None]
